FAERS Safety Report 8088463-4 (Version None)
Quarter: 2012Q1

REPORT INFORMATION
  Report Type: 
  Country: None (occurrence: None)
  Receive Date: 20120128
  Receipt Date: 20110418
  Transmission Date: 20120608
  Serious: No
  Sender: FDA-Public Use
  Company Number: US-ABBOTT-11P-163-0719808-00

PATIENT
  Age: 30 Year
  Sex: Female

DRUGS (3)
  1. HUMIRA [Suspect]
     Indication: PSORIASIS
     Dates: start: 20110123
  2. CYMBALTA [Concomitant]
     Indication: DEPRESSION
  3. LEVOTHYROXINE SODIUM [Concomitant]
     Indication: THYROID DISORDER

REACTIONS (2)
  - WEIGHT INCREASED [None]
  - ABDOMINAL DISCOMFORT [None]
